FAERS Safety Report 20910865 (Version 1)
Quarter: 2022Q2

REPORT INFORMATION
  Report Type: Spontaneous
  Country: US (occurrence: None)
  Receive Date: 20220602
  Receipt Date: 20220602
  Transmission Date: 20220721
  Serious: Yes (Disabling)
  Sender: FDA-Public Use
  Company Number: None

PATIENT
  Age: 60 Year
  Sex: Female
  Weight: 74.25 kg

DRUGS (3)
  1. HUMIRA [Suspect]
     Active Substance: ADALIMUMAB
     Indication: Rheumatoid arthritis
     Dosage: OTHER FREQUENCY : TWICE MONTHLY;?
     Route: 058
  2. ORENCIA [Concomitant]
     Active Substance: ABATACEPT
  3. ARAVA [Concomitant]
     Active Substance: LEFLUNOMIDE

REACTIONS (6)
  - Pustular psoriasis [None]
  - Dermatitis contact [None]
  - Skin erosion [None]
  - Wound [None]
  - Psoriasis [None]
  - Palmoplantar pustulosis [None]

NARRATIVE: CASE EVENT DATE: 20211115
